FAERS Safety Report 16366401 (Version 2)
Quarter: 2019Q2

REPORT INFORMATION
  Report Type: Spontaneous
  Country: US (occurrence: US)
  Receive Date: 20190529
  Receipt Date: 20190611
  Transmission Date: 20190711
  Serious: No
  Sender: FDA-Public Use
  Company Number: US-TORRENT-00008785

PATIENT
  Sex: Female
  Weight: 72 kg

DRUGS (3)
  1. DIGOXIN. [Concomitant]
     Active Substance: DIGOXIN
     Indication: SUPRAVENTRICULAR TACHYCARDIA
     Dosage: UNKNOWN
  2. ZOLPIDEM TARTRATE. [Suspect]
     Active Substance: ZOLPIDEM TARTRATE
     Indication: INSOMNIA
     Dosage: ZOLPIDEM 5 MG HALF A TABLET, AS NEEDED
  3. BUPROPION. [Concomitant]
     Active Substance: BUPROPION
     Indication: ANTIDEPRESSANT THERAPY
     Dosage: UNKNOWN

REACTIONS (1)
  - Drug ineffective [Unknown]
